FAERS Safety Report 7694316-3 (Version None)
Quarter: 2011Q3

REPORT INFORMATION
  Report Type: 
  Country: None (occurrence: None)
  Receive Date: 20110819
  Receipt Date: 20110812
  Transmission Date: 20111222
  Serious: No
  Sender: FDA-Public Use
  Company Number: US-B.I. PHARMACEUTICALS,INC./RIDGEFIELD-2011-BP-20244BP

PATIENT
  Sex: Female

DRUGS (1)
  1. MIRAPEX [Suspect]
     Indication: RESTLESS LEGS SYNDROME
     Dates: start: 19970101

REACTIONS (11)
  - EMOTIONAL DISTRESS [None]
  - INSOMNIA [None]
  - SUICIDAL IDEATION [None]
  - WEIGHT INCREASED [None]
  - ANXIETY [None]
  - HEART RATE INCREASED [None]
  - PATHOLOGICAL GAMBLING [None]
  - PANIC ATTACK [None]
  - CHEST PAIN [None]
  - DEPRESSION [None]
  - STRESS [None]
